FAERS Safety Report 24131735 (Version 1)
Quarter: 2024Q3

REPORT INFORMATION
  Report Type: Spontaneous
  Country: GB (occurrence: GB)
  Receive Date: 20240724
  Receipt Date: 20240724
  Transmission Date: 20241017
  Serious: Yes (Other)
  Sender: TEVA
  Company Number: GB-MHRA-TPP6097652C11287755YC1721128438805

PATIENT
  Age: 69 Year
  Sex: Female
  Weight: 65 kg

DRUGS (5)
  1. MIRTAZAPINE [Suspect]
     Active Substance: MIRTAZAPINE
     Dosage: AT NIGHT
     Route: 065
     Dates: start: 20240702
  2. CLOBETASONE BUTYRATE [Concomitant]
     Active Substance: CLOBETASONE BUTYRATE
     Dosage: MODERATE POTENCY STEROID OINTMENT - APPLY ONCE ...
     Dates: start: 20240702
  3. ESTRADIOL [Concomitant]
     Active Substance: ESTRADIOL
     Route: 067
     Dates: start: 20230403
  4. LORATADINE [Concomitant]
     Active Substance: LORATADINE
     Dates: start: 20240702
  5. BETAMETHASONE VALERATE [Concomitant]
     Active Substance: BETAMETHASONE VALERATE
     Dosage: MODERATE POTENCY STEROID OINTMENT -  APPLY ONCE...
     Dates: start: 20240702

REACTIONS (3)
  - Myalgia [Recovered/Resolved]
  - Dizziness [Unknown]
  - Loss of consciousness [Unknown]
